FAERS Safety Report 4480664-7 (Version None)
Quarter: 2004Q4

REPORT INFORMATION
  Report Type: 
  Country: None (occurrence: None)
  Receive Date: 20041019
  Receipt Date: 20041004
  Transmission Date: 20050328
  Serious: Yes (Disabling)
  Sender: FDA-Public Use
  Company Number: 2003-FF-00119FF

PATIENT
  Age: 50 Year
  Sex: Male

DRUGS (3)
  1. VIRAMUNE [Suspect]
     Indication: HIV INFECTION
     Dosage: 2 UNIT DOSES DAILY, PO
     Route: 048
     Dates: start: 20010925
  2. NORVIR [Concomitant]
  3. INVIRASE [Concomitant]

REACTIONS (9)
  - AREFLEXIA [None]
  - GLYCOSYLATED HAEMOGLOBIN DECREASED [None]
  - HYPOAESTHESIA [None]
  - HYPOREFLEXIA [None]
  - MUSCLE CRAMP [None]
  - NEUROPATHY PERIPHERAL [None]
  - PAIN [None]
  - PAIN IN EXTREMITY [None]
  - PERIPHERAL SENSORY NEUROPATHY [None]
